FAERS Safety Report 23440988 (Version 1)
Quarter: 2024Q1

REPORT INFORMATION
  Report Type: Spontaneous
  Country: US (occurrence: US)
  Receive Date: 20240125
  Receipt Date: 20240125
  Transmission Date: 20240410
  Serious: Yes (Other)
  Sender: FDA-Public Use
  Company Number: US-AVET LIFESCIENCES LTD-2024-AVET-000015

PATIENT
  Sex: Female

DRUGS (2)
  1. ACETAMINOPHEN [Interacting]
     Active Substance: ACETAMINOPHEN
     Indication: Back pain
     Dosage: 1300 MG EVERY 8 HOURS FOR A TOTAL OF 3900 MG DAILY
  2. WARFARIN [Interacting]
     Active Substance: WARFARIN
     Indication: Anticoagulation drug level
     Dosage: UNK WITH A STABLE INR OF 2.0 TO 3.0 FOR MANY MONTHS

REACTIONS (2)
  - Anticoagulation drug level above therapeutic [Recovered/Resolved]
  - Drug interaction [Unknown]
